FAERS Safety Report 9225671 (Version 4)
Quarter: 2013Q3

REPORT INFORMATION
  Report Type: Spontaneous
  Country: US (occurrence: US)
  Receive Date: 20130411
  Receipt Date: 20130729
  Transmission Date: 20140515
  Serious: Yes (Hospitalization)
  Sender: FDA-Public Use
  Company Number: US-GLAXOSMITHKLINE-A1019637A

PATIENT
  Age: 43 Year
  Sex: Female
  Weight: 66 kg

DRUGS (2)
  1. FLOLAN [Suspect]
     Indication: PULMONARY ARTERIAL HYPERTENSION
     Dosage: 19NGKM CONTINUOUS
     Route: 065
     Dates: start: 20070616
  2. UNKNOWN MEDICATION [Suspect]

REACTIONS (3)
  - Pulmonary hypertension [Recovered/Resolved]
  - Mental status changes [Recovered/Resolved]
  - Bedridden [Unknown]
